FAERS Safety Report 7098169-6 (Version None)
Quarter: 2010Q4

REPORT INFORMATION
  Report Type: 
  Country: None (occurrence: None)
  Receive Date: 20101104
  Receipt Date: 20101028
  Transmission Date: 20110411
  Serious: Yes (Other)
  Sender: FDA-Public Use
  Company Number: 2010JP005244

PATIENT
  Age: 45 Year
  Sex: Male

DRUGS (5)
  1. PROGRAF [Suspect]
     Indication: BONE MARROW TRANSPLANT
     Dates: start: 20091211
  2. METHOTREXATE [Suspect]
     Indication: BONE MARROW TRANSPLANT
  3. IMATINIB MESYLATE [Concomitant]
  4. DASATINIB (DASATINIB) [Concomitant]
  5. CYCLOPHOSPHAMIDE [Concomitant]

REACTIONS (5)
  - ACUTE LYMPHOCYTIC LEUKAEMIA RECURRENT [None]
  - METABOLIC DISORDER [None]
  - PARALYSIS FLACCID [None]
  - SENSORY DISTURBANCE [None]
  - SPINAL CORD DISORDER [None]
